FAERS Safety Report 19239203 (Version 1)
Quarter: 2021Q2

REPORT INFORMATION
  Report Type: Spontaneous
  Country: US (occurrence: US)
  Receive Date: 20210510
  Receipt Date: 20210510
  Transmission Date: 20210717
  Serious: Yes (Death)
  Sender: FDA-Public Use
  Company Number: US-PROCTER_AND_GAMBLE-PH21003729

PATIENT
  Sex: Male

DRUGS (1)
  1. PEPTO?BISMOL NOS [Suspect]
     Active Substance: BISMUTH SUBSALICYLATE OR CALCIUM CARBONATE
     Dosage: UNK
     Route: 048

REACTIONS (2)
  - Defaecation disorder [Unknown]
  - Cardiac failure [Fatal]
